FAERS Safety Report 11234579 (Version 1)
Quarter: 2015Q2

REPORT INFORMATION
  Report Type: Spontaneous
  Country: US (occurrence: None)
  Receive Date: 20150630
  Receipt Date: 20150630
  Transmission Date: 20150821
  Serious: No
  Sender: FDA-Public Use
  Company Number: 1210513-2015-00142

PATIENT
  Age: 13 Year
  Sex: Female

DRUGS (2)
  1. DR. SHEFFIELD CLEAR ZIT 2% SALACYLIC ACID [Suspect]
     Active Substance: SALICYLIC ACID
     Indication: THERAPEUTIC SKIN CARE TOPICAL
     Route: 061
     Dates: start: 20141202, end: 20141209
  2. DR. SHEFFIELD CLEAR ZIT 2% SALACYLIC ACID [Suspect]
     Active Substance: SALICYLIC ACID
     Indication: ACNE
     Route: 061
     Dates: start: 20141202, end: 20141209

REACTIONS (1)
  - Application site exfoliation [None]

NARRATIVE: CASE EVENT DATE: 201412
